FAERS Safety Report 5801163-3 (Version None)
Quarter: 2008Q3

REPORT INFORMATION
  Report Type: 
  Country: None (occurrence: None)
  Receive Date: 20080707
  Receipt Date: 20080626
  Transmission Date: 20090109
  Serious: Yes (Death)
  Sender: FDA-Public Use
  Company Number: PHHY2008US12354

PATIENT
  Sex: Male

DRUGS (10)
  1. CLOZARIL [Suspect]
     Indication: SCHIZOPHRENIA
     Dosage: 300 MG, BID
     Route: 048
     Dates: start: 20060101
  2. CLOZARIL [Suspect]
     Dosage: 400 MG, BID
     Route: 048
  3. DEPAKOTE [Concomitant]
  4. HALDOL [Concomitant]
  5. ZOLOFT [Concomitant]
  6. ABILIFY [Concomitant]
  7. LISINOPRIL [Concomitant]
  8. ATENOLOL [Concomitant]
  9. GLIPIZIDE [Concomitant]
  10. ACTOS [Concomitant]

REACTIONS (3)
  - CONVULSION [None]
  - DRUG LEVEL INCREASED [None]
  - DRUG TOXICITY [None]
